FAERS Safety Report 17306211 (Version 1)
Quarter: 2020Q1

REPORT INFORMATION
  Report Type: Spontaneous
  Country: SI (occurrence: SI)
  Receive Date: 20200123
  Receipt Date: 20200123
  Transmission Date: 20200409
  Serious: Yes (Hospitalization)
  Sender: FDA-Public Use
  Company Number: NVSC2020SI014238

PATIENT
  Age: 85 Year
  Sex: Female

DRUGS (5)
  1. METAMIZOLE SODIUM MONOHYDRATE [Concomitant]
     Active Substance: DIPYRONE
     Indication: PAIN
     Dosage: 500 MG (TAKE AS NECESSARY)
     Route: 065
  2. EDEMID 500 MG TABLETE [Suspect]
     Active Substance: FUROSEMIDE
     Indication: NEPHROPATHY
     Dosage: 250 MG (1/2 TBL IN THE MORNINGS AND 1/2 TBL IN THE AFTERNOON)
     Route: 048
  3. LACIPIL [Concomitant]
     Active Substance: LACIDIPINE
     Indication: PRODUCT USED FOR UNKNOWN INDICATION
     Dosage: 4 MG, QD (IN THE EVENINGS)
     Route: 065
  4. ALPHA D3 [Concomitant]
     Active Substance: ALFACALCIDOL
     Indication: PRODUCT USED FOR UNKNOWN INDICATION
     Dosage: 0.25 UG, QD (1 CAPS. IN THE MORNINGS)
     Route: 065
  5. RENVELA [Concomitant]
     Active Substance: SEVELAMER CARBONATE
     Indication: PRODUCT USED FOR UNKNOWN INDICATION
     Dosage: 800 MG (1 TBL IN THE MORNINGS AND 1 TBL IN THE EVENINGS)
     Route: 065

REACTIONS (1)
  - Renal impairment [Recovering/Resolving]

NARRATIVE: CASE EVENT DATE: 2019
